FAERS Safety Report 21110601 (Version 2)
Quarter: 2023Q2

REPORT INFORMATION
  Report Type: Report from Study
  Country: US (occurrence: US)
  Receive Date: 20220721
  Receipt Date: 20230629
  Transmission Date: 20230721
  Serious: Yes (Other)
  Sender: FDA-Public Use
  Company Number: US-TAKEDA-US202011209

PATIENT
  Sex: Female

DRUGS (2)
  1. HUMAN IMMUNOGLOBULIN G [Suspect]
     Active Substance: HUMAN IMMUNOGLOBULIN G
     Indication: Primary immunodeficiency syndrome
     Dosage: UNK
     Route: 042
  2. COVID-19 VACCINE NOS [Suspect]
     Active Substance: COVID-19 VACCINE NOS
     Indication: COVID-19 immunisation
     Dosage: UNK
     Route: 065

REACTIONS (11)
  - Gastrinoma [Unknown]
  - Pancreatitis [Unknown]
  - Dehydration [Unknown]
  - Muscle spasms [Unknown]
  - Pyrexia [Unknown]
  - Poor venous access [Unknown]
  - Vaccination site pain [Unknown]
  - Fall [Unknown]
  - Insurance issue [Unknown]
  - Fatigue [Unknown]
  - Inappropriate schedule of product administration [Unknown]
